FAERS Safety Report 8770783 (Version 1)
Quarter: 2012Q4

REPORT INFORMATION
  Report Type: 
  Country: US (occurrence: US)
  Receive Date: 20120906
  Receipt Date: 20120906
  Transmission Date: 20130627
  Serious: No
  Sender: FDA-Public Use
  Company Number: US-009507513-1209USA002197

PATIENT

DRUGS (1)
  1. DULERA [Suspect]
     Route: 055

REACTIONS (1)
  - Candidiasis [Unknown]
